FAERS Safety Report 9849485 (Version 1)
Quarter: 2014Q1

REPORT INFORMATION
  Report Type: Spontaneous
  Country: US (occurrence: None)
  Receive Date: 20140124
  Receipt Date: 20140124
  Transmission Date: 20141002
  Serious: Yes (Other)
  Sender: FDA-Public Use
  Company Number: 2126198

PATIENT
  Age: 63 Year
  Sex: Female
  Weight: 107.5 kg

DRUGS (3)
  1. LEVOPHED [Suspect]
     Indication: SEPSIS
     Dosage: 8 MG/250 ML, CONTINUOUS, UNKNOWN
     Route: 041
     Dates: start: 20131209, end: 20131212
  2. VASOPRESSIN [Concomitant]
  3. PHENYLEPHRINE [Concomitant]

REACTIONS (8)
  - Platelet count decreased [None]
  - Ecchymosis [None]
  - Neutropenia [None]
  - Continuous haemodiafiltration [None]
  - Disseminated intravascular coagulation [None]
  - Gangrene [None]
  - Sepsis [None]
  - Condition aggravated [None]
